FAERS Safety Report 23481330 (Version 1)
Quarter: 2024Q1

REPORT INFORMATION
  Report Type: Other
  Country: CN (occurrence: None)
  Receive Date: 20240205
  Receipt Date: 20240205
  Transmission Date: 20240410
  Serious: Yes (Other)
  Sender: FDA-Public Use
  Company Number: CN-ROCHE-3500855

PATIENT

DRUGS (2)
  1. RITUXIMAB [Suspect]
     Active Substance: RITUXIMAB
     Indication: Pemphigus
     Route: 042
  2. PREDNISONE [Suspect]
     Active Substance: PREDNISONE
     Indication: Pemphigus
     Dosage: REDUCED BY 5 MG EVERY 2 WEEKS WHEN THE DOSE OF PREDNISONE WAS MORE THAN 40 MG THEN THE DOSE OF PREDN
     Route: 065

REACTIONS (15)
  - Stress ulcer haemorrhage [Unknown]
  - Brain abscess [Unknown]
  - Pathological fracture [Unknown]
  - Acne [Unknown]
  - Fungal skin infection [Unknown]
  - Skin papilloma [Unknown]
  - Herpes simplex [Unknown]
  - Herpes zoster [Unknown]
  - Pneumonia bacterial [Unknown]
  - Osteoporosis [Unknown]
  - Osteonecrosis [Unknown]
  - Hepatic enzyme increased [Unknown]
  - Gastritis [Unknown]
  - Hypothyroidism [Unknown]
  - Nerve injury [Unknown]
